FAERS Safety Report 10762693 (Version 1)
Quarter: 2015Q1

REPORT INFORMATION
  Report Type: Spontaneous
  Country: US (occurrence: None)
  Receive Date: 20150129
  Receipt Date: 20150129
  Transmission Date: 20150721
  Serious: Yes (Hospitalization)
  Sender: FDA-Public Use
  Company Number: 2014007688

PATIENT
  Age: 67 Year
  Sex: Male

DRUGS (5)
  1. KEPPRA XR [Suspect]
     Active Substance: LEVETIRACETAM
     Indication: SEIZURE
     Dosage: 500 GM/2 DAILY
     Dates: start: 201108
  2. TOPAMAX [Concomitant]
     Active Substance: TOPIRAMATE
  3. SYNTHROID [Concomitant]
     Active Substance: LEVOTHYROXINE SODIUM
  4. VIMPAT [Suspect]
     Active Substance: LACOSAMIDE
     Indication: SEIZURE
     Dosage: 200 MG/2 DAILY
     Dates: start: 201407, end: 20140707
  5. ATIVAN [Concomitant]
     Active Substance: LORAZEPAM

REACTIONS (2)
  - Generalised tonic-clonic seizure [None]
  - Seizure [None]

NARRATIVE: CASE EVENT DATE: 20140704
